FAERS Safety Report 7333363-8 (Version None)
Quarter: 2011Q1

REPORT INFORMATION
  Report Type: 
  Country: None (occurrence: None)
  Receive Date: 20110304
  Receipt Date: 20110221
  Transmission Date: 20110831
  Serious: Yes (Other)
  Sender: FDA-Public Use
  Company Number: US-ELI_LILLY_AND_COMPANY-US201101004162

PATIENT
  Sex: Male
  Weight: 82.902 kg

DRUGS (3)
  1. ALIMTA [Suspect]
     Indication: NON-SMALL CELL LUNG CANCER
     Dosage: 1000 MG, UNK
     Route: 042
     Dates: start: 20110106
  2. FOLIC ACID [Concomitant]
     Dosage: 1 MG, DAILY (1/D)
     Route: 048
     Dates: start: 20101230
  3. VITAMIN B-12 [Concomitant]
     Dosage: 1000 UG, UNK
     Route: 030
     Dates: start: 20101230

REACTIONS (8)
  - DYSPNOEA [None]
  - DIZZINESS [None]
  - ASTHENIA [None]
  - FATIGUE [None]
  - DECREASED APPETITE [None]
  - BALANCE DISORDER [None]
  - DEHYDRATION [None]
  - OLIGODIPSIA [None]
